FAERS Safety Report 5602263-3 (Version None)
Quarter: 2008Q1

REPORT INFORMATION
  Report Type: 
  Country: None (occurrence: None)
  Receive Date: 20080125
  Receipt Date: 20080112
  Transmission Date: 20080703
  Serious: Yes (Other)
  Sender: FDA-Public Use
  Company Number: DE-AMGEN-UK253839

PATIENT
  Age: 80 Year
  Sex: Female
  Weight: 54.5 kg

DRUGS (6)
  1. MIMPARA [Suspect]
     Indication: DRUG USE FOR UNKNOWN INDICATION
     Route: 048
  2. BISOPROLOL FUMARATE [Concomitant]
     Route: 065
  3. DREISAVIT [Concomitant]
     Route: 065
  4. OMEPRAZOLE [Concomitant]
     Route: 065
  5. ALFACALCIDOL [Concomitant]
     Route: 065
  6. CALCIUM ACETATE [Concomitant]
     Route: 065

REACTIONS (3)
  - DYSPNOEA [None]
  - HYPERTENSION [None]
  - HYPOCALCAEMIA [None]
